FAERS Safety Report 25742879 (Version 1)
Quarter: 2025Q3

REPORT INFORMATION
  Report Type: Spontaneous
  Country: TW (occurrence: TW)
  Receive Date: 20250830
  Receipt Date: 20250830
  Transmission Date: 20251020
  Serious: Yes (Other)
  Sender: MACLEODS
  Company Number: TW-MLMSERVICE-20250819-PI612259-00202-3

PATIENT

DRUGS (2)
  1. LINEZOLID [Suspect]
     Active Substance: LINEZOLID
     Indication: Residual symptom
     Route: 048
     Dates: start: 200502, end: 200508
  2. LINEZOLID [Suspect]
     Active Substance: LINEZOLID
     Indication: Infection

REACTIONS (5)
  - Small fibre neuropathy [Recovered/Resolved]
  - Peripheral nerve destruction [Recovered/Resolved]
  - Nerve degeneration [Recovered/Resolved]
  - Neuralgia [Recovered/Resolved]
  - Incorrect product administration duration [Recovered/Resolved]

NARRATIVE: CASE EVENT DATE: 20050601
